FAERS Safety Report 8022789-5 (Version None)
Quarter: 2012Q1

REPORT INFORMATION
  Report Type: 
  Country: None (occurrence: None)
  Receive Date: 20120104
  Receipt Date: 20111229
  Transmission Date: 20120608
  Serious: Yes (Death)
  Sender: FDA-Public Use
  Company Number: GB-ROCHE-1013952

PATIENT
  Sex: Female
  Weight: 67 kg

DRUGS (5)
  1. METFORMIN HCL [Concomitant]
  2. LUCENTIS [Suspect]
     Indication: PRODUCT USED FOR UNKNOWN INDICATION
     Route: 050
  3. ACETAMINOPHEN [Concomitant]
     Dates: start: 20090101
  4. ASPIRIN [Concomitant]
  5. AMLODIPINE [Concomitant]

REACTIONS (3)
  - HYPERTENSION [None]
  - HAEMORRHAGIC STROKE [None]
  - PNEUMONIA ASPIRATION [None]
